FAERS Safety Report 25739839 (Version 2)
Quarter: 2025Q4

REPORT INFORMATION
  Report Type: Report from Study
  Country: US (occurrence: US)
  Receive Date: 20250829
  Receipt Date: 20251225
  Transmission Date: 20260117
  Serious: Yes (Other)
  Sender: Unknown Manufacturer
  Company Number: US-BLUEBIRD BIO-US-BBB-25-00059

PATIENT
  Age: 21 Year

DRUGS (6)
  1. ZYNTEGLO [Suspect]
     Active Substance: BETIBEGLOGENE AUTOTEMCEL
     Indication: Thalassaemia beta
     Dosage: UNK, SINGLE
  2. PENTAMIDINE [Concomitant]
     Active Substance: PENTAMIDINE
     Indication: Pneumocystis jirovecii pneumonia
     Dosage: 4 MILLIGRAM/KILOGRAM, MONTHLY
  3. MIRALAX [Concomitant]
     Active Substance: POLYETHYLENE GLYCOL 3350
     Indication: Constipation
     Dosage: 17 GRAM, QD
     Route: 061
  4. ACYCLOVIR [Concomitant]
     Active Substance: ACYCLOVIR
     Indication: Antiviral prophylaxis
     Dosage: 400 MILLIGRAM, BID
     Route: 061
  5. URSODIOL [Concomitant]
     Active Substance: URSODIOL
     Indication: Sickle cell anaemia with crisis
     Dosage: 300 MILLIGRAM, TID
     Route: 061
  6. ESTARYLLA [Concomitant]
     Active Substance: ETHINYL ESTRADIOL\NORGESTIMATE
     Indication: Menstrual cycle management
     Dosage: ETHINYL ESTRADIOL 0.035 MG- NORGESTIMATE 0.25MG, QD
     Route: 061

REACTIONS (4)
  - Thrombocytopenia [Recovered/Resolved]
  - Anaemia [Recovering/Resolving]
  - Lymphopenia [Recovered/Resolved]
  - Neutropenia [Recovered/Resolved]
